FAERS Safety Report 5025885-X (Version None)
Quarter: 2006Q2

REPORT INFORMATION
  Report Type: 
  Country: None (occurrence: None)
  Receive Date: 20060608
  Receipt Date: 20060608
  Transmission Date: 20061013
  Serious: Yes (Hospitalization)
  Sender: FDA-Public Use
  Company Number: None

PATIENT
  Age: 67 Year
  Sex: Female
  Weight: 50.8029 kg

DRUGS (3)
  1. GLEEVEC [Suspect]
     Indication: METASTASIS
     Dosage: 400 MG PO BID
     Route: 048
     Dates: start: 20060523
  2. GLEEVEC [Suspect]
     Indication: SARCOMA
     Dosage: 400 MG PO BID
     Route: 048
     Dates: start: 20060523
  3. TAXOL [Suspect]
     Dosage: 100 MG /M2 IV
     Route: 042
     Dates: start: 20060525

REACTIONS (1)
  - FEBRILE NEUTROPENIA [None]
